FAERS Safety Report 16353417 (Version 1)
Quarter: 2019Q2

REPORT INFORMATION
  Report Type: Spontaneous
  Country: US (occurrence: US)
  Receive Date: 20190524
  Receipt Date: 20190524
  Transmission Date: 20190711
  Serious: Yes (Life-Threatening, Hospitalization, Other)
  Sender: FDA-Public Use
  Company Number: US-MYLANLABS-2019M1048693

PATIENT
  Age: 61 Year
  Sex: Male

DRUGS (5)
  1. FLUTICASONE PROPIONATE/SALMETEROL XINAFOATE [Suspect]
     Active Substance: FLUTICASONE PROPIONATE\SALMETEROL XINAFOATE
     Indication: ASTHMA
     Route: 048
  2. PREDNISONE. [Suspect]
     Active Substance: PREDNISONE
     Indication: ASTHMA
     Dosage: LOW-DOSE
     Route: 048
  3. IPRATROPIUM [Concomitant]
     Active Substance: IPRATROPIUM
     Indication: ASTHMA
     Route: 065
  4. LISINOPRIL. [Concomitant]
     Active Substance: LISINOPRIL
     Indication: HYPERTENSION
     Route: 065
  5. PREDNISONE. [Suspect]
     Active Substance: PREDNISONE
     Indication: OBSTRUCTIVE AIRWAYS DISORDER
     Dosage: 1 MILLIGRAM/KILOGRAM
     Route: 048

REACTIONS (10)
  - Encephalopathy [Recovering/Resolving]
  - Haemodynamic instability [Recovering/Resolving]
  - Respiratory distress [Recovering/Resolving]
  - Hyponatraemia [Recovering/Resolving]
  - Pneumonia [Recovering/Resolving]
  - Hepatic enzyme increased [Recovering/Resolving]
  - Tachycardia [Recovering/Resolving]
  - Septic shock [Recovering/Resolving]
  - Hypoalbuminaemia [Recovering/Resolving]
  - Strongyloidiasis [Recovering/Resolving]
